FAERS Safety Report 4792447-9 (Version None)
Quarter: 2005Q4

REPORT INFORMATION
  Report Type: 
  Country: None (occurrence: None)
  Receive Date: 20051010
  Receipt Date: 20050927
  Transmission Date: 20060501
  Serious: Yes (Other)
  Sender: FDA-Public Use
  Company Number: GB-NOVOPROD-247273

PATIENT
  Age: 61 Year
  Weight: 88 kg

DRUGS (6)
  1. LEVEMIR [Suspect]
     Indication: DIABETES MELLITUS
     Dosage: 13 IU, QD
     Route: 058
     Dates: start: 20050818, end: 20050908
  2. DIFLUCAN [Concomitant]
     Dosage: 150 MG, QD
     Route: 048
     Dates: start: 20050906, end: 20050906
  3. METFORMIN [Concomitant]
     Dosage: 1 G, QD
     Route: 048
     Dates: start: 20010101
  4. AVANDIA [Concomitant]
     Dosage: 8 MG, QD
     Route: 048
     Dates: start: 20041209, end: 20050818
  5. SERETIDE ^ALLEN + HANBURYS LTD^ [Concomitant]
     Dosage: 1 PUFF, BID
     Dates: start: 20010101
  6. ALBUTEROL [Concomitant]
     Dosage: 1 PUFF, QD
     Route: 055
     Dates: start: 20040507

REACTIONS (1)
  - CELLULITIS [None]
